FAERS Safety Report 9338309 (Version 1)
Quarter: 2013Q2

REPORT INFORMATION
  Report Type: Spontaneous
  Country: US (occurrence: None)
  Receive Date: 20130605
  Receipt Date: 20130605
  Transmission Date: 20140414
  Serious: Yes (Hospitalization)
  Sender: FDA-Public Use
  Company Number: None

PATIENT
  Age: 2 Year
  Sex: Male
  Weight: 11.7 kg

DRUGS (3)
  1. IFOSFAMIDE [Suspect]
  2. VINCRISTINE SULFATE [Suspect]
  3. ETOPOSIDE (VP-16) [Suspect]

REACTIONS (11)
  - Abdominal pain [None]
  - Abdominal distension [None]
  - Body temperature increased [None]
  - Hypopnoea [None]
  - Diarrhoea [None]
  - Urinary retention [None]
  - Tachycardia [None]
  - Aspartate aminotransferase increased [None]
  - Alanine aminotransferase increased [None]
  - Activated partial thromboplastin time prolonged [None]
  - Venoocclusive disease [None]
